FAERS Safety Report 16697098 (Version 2)
Quarter: 2020Q1

REPORT INFORMATION
  Report Type: Spontaneous
  Country: FR (occurrence: FR)
  Receive Date: 20190813
  Receipt Date: 20200123
  Transmission Date: 20200409
  Serious: Yes (Life-Threatening)
  Sender: FDA-Public Use
  Company Number: FR-MYLANLABS-2019M1074849

PATIENT
  Age: 71 Year
  Sex: Male
  Weight: 50 kg

DRUGS (6)
  1. LIDOCAINE AGUETTANT [Suspect]
     Active Substance: LIDOCAINE
     Indication: GENERAL ANAESTHESIA
     Dosage: 291 MILLIGRAM, QD
     Route: 041
     Dates: start: 20180918, end: 20180918
  2. MAGNESIUM SULFATE. [Suspect]
     Active Substance: MAGNESIUM SULFATE
     Indication: GENERAL ANAESTHESIA
     Dosage: 9.8 MILLIGRAM/KILOGRAM, QD
     Route: 041
     Dates: start: 20180918, end: 20180918
  3. AUGMENTIN [Suspect]
     Active Substance: AMOXICILLIN\CLAVULANATE POTASSIUM
     Indication: ANTIBIOTIC PROPHYLAXIS
     Dosage: 2 GRAM, TOTAL
     Route: 042
     Dates: start: 20190918, end: 20190918
  4. MIDAZOLAM MYLAN [Suspect]
     Active Substance: MIDAZOLAM HYDROCHLORIDE
     Indication: GENERAL ANAESTHESIA
     Dosage: 1 MILLIGRAM, TOTAL
     Route: 042
     Dates: start: 20180918, end: 20180918
  5. CISATRACURIUM MYLAN [Suspect]
     Active Substance: CISATRACURIUM
     Indication: GENERAL ANAESTHESIA
     Dosage: 10 MILLIGRAM, QD
     Route: 042
     Dates: start: 20180918, end: 20180918
  6. PROPOFOL LIPURO [Suspect]
     Active Substance: PROPOFOL
     Indication: GENERAL ANAESTHESIA
     Dosage: 24.5 MILLIGRAM PER MILLILITRE, 24.5 MG/ML X1/J
     Route: 041
     Dates: start: 20180918, end: 20180918

REACTIONS (1)
  - Anaphylactic shock [Recovered/Resolved]

NARRATIVE: CASE EVENT DATE: 20180918
